FAERS Safety Report 6981565-2 (Version None)
Quarter: 2010Q3

REPORT INFORMATION
  Report Type: 
  Country: None (occurrence: None)
  Receive Date: 20100909
  Receipt Date: 20100825
  Transmission Date: 20110219
  Serious: Yes (Death)
  Sender: FDA-Public Use
  Company Number: 010872

PATIENT
  Age: 62 Year
  Sex: Male

DRUGS (1)
  1. SAMSCA [Suspect]
     Indication: HYPONATRAEMIA
     Dosage: 45 MG, ORAL
     Route: 048

REACTIONS (2)
  - BRONCHIAL CARCINOMA [None]
  - NEOPLASM PROGRESSION [None]
